FAERS Safety Report 4493278-X (Version None)
Quarter: 2004Q4

REPORT INFORMATION
  Report Type: 
  Country: None (occurrence: None)
  Receive Date: 20041102
  Receipt Date: 20041018
  Transmission Date: 20050328
  Serious: Yes (Hospitalization, Other)
  Sender: FDA-Public Use
  Company Number: US_0410107104

PATIENT
  Sex: Female
  Weight: 83 kg

DRUGS (1)
  1. HUMALOG [Suspect]
     Dosage: 100 U DAY
     Dates: start: 19990101

REACTIONS (6)
  - BLINDNESS UNILATERAL [None]
  - CARDIAC DISORDER [None]
  - EYE HAEMORRHAGE [None]
  - INTRACARDIAC THROMBUS [None]
  - OPTIC ISCHAEMIC NEUROPATHY [None]
  - RETINAL ISCHAEMIA [None]
